FAERS Safety Report 20039617 (Version 10)
Quarter: 2022Q2

REPORT INFORMATION
  Report Type: Spontaneous
  Country: CA (occurrence: CA)
  Receive Date: 20211106
  Receipt Date: 20220504
  Transmission Date: 20220720
  Serious: Yes (Hospitalization, Other)
  Sender: FDA-Public Use
  Company Number: CA-CELLTRION INC.-2021CA014872

PATIENT

DRUGS (11)
  1. INFLECTRA [Suspect]
     Active Substance: INFLIXIMAB-DYYB
     Indication: Colitis ulcerative
     Dosage: 700 MG, 0, 2, 6 WEEKS THEN EVERY 4 WEEKS, INDUCTION: WEEK 0
     Route: 042
     Dates: start: 20211014, end: 20211014
  2. INFLECTRA [Suspect]
     Active Substance: INFLIXIMAB-DYYB
     Dosage: 700 MG, WEEK 2 DOSE (RESCUE DOSE, AT HOSPITAL: IT WAS GIVEN 1 WEEK EARLIER)
     Route: 042
     Dates: start: 20211021, end: 20211021
  3. INFLECTRA [Suspect]
     Active Substance: INFLIXIMAB-DYYB
     Dosage: 700 MG, INDUCTION WEEK 6 DOSE
     Route: 042
     Dates: start: 20211109, end: 20211109
  4. INFLECTRA [Suspect]
     Active Substance: INFLIXIMAB-DYYB
     Dosage: 700 MG, EVERY 4 WEEK (MAINTENANCE DOSE)
     Route: 042
     Dates: start: 20211206, end: 20220201
  5. INFLECTRA [Suspect]
     Active Substance: INFLIXIMAB-DYYB
     Dosage: 700 MG, EVERY 4 WEEK
     Route: 042
     Dates: start: 20220106
  6. INFLECTRA [Suspect]
     Active Substance: INFLIXIMAB-DYYB
     Dosage: 700 MG, EVERY 4 WEEK
     Route: 042
     Dates: start: 20220201, end: 20220201
  7. ATENOLOL [Concomitant]
     Active Substance: ATENOLOL
     Dosage: UNK
  8. AMLODIPINE [Concomitant]
     Active Substance: AMLODIPINE BESYLATE
     Dosage: UNK
  9. AZATHIOPRINE [Concomitant]
     Active Substance: AZATHIOPRINE
     Dosage: UNK
  10. PREDNISONE [Concomitant]
     Active Substance: PREDNISONE
     Dosage: UNK
  11. SHINGRIX [Concomitant]
     Active Substance: RECOMBINANT VARICELLA ZOSTER VIRUS (VZV) GLYCOPROTEIN E
     Dosage: UNK

REACTIONS (8)
  - Condition aggravated [Unknown]
  - Blood pressure increased [Unknown]
  - Drug ineffective [Unknown]
  - Malaise [Not Recovered/Not Resolved]
  - Off label use [Unknown]
  - Off label use [Unknown]
  - Intentional product use issue [Unknown]
  - Drug level above therapeutic [Unknown]

NARRATIVE: CASE EVENT DATE: 20210101
